FAERS Safety Report 5189412-9 (Version None)
Quarter: 2006Q4

REPORT INFORMATION
  Report Type: 
  Country: None (occurrence: None)
  Receive Date: 20061221
  Receipt Date: 20061215
  Transmission Date: 20070319
  Serious: Yes (Hospitalization)
  Sender: FDA-Public Use
  Company Number: FR-MERCK-0612FRA00051

PATIENT
  Age: 34 Year
  Sex: Male

DRUGS (6)
  1. PRIMAXIN [Suspect]
     Indication: SEPTIC SHOCK
     Route: 042
     Dates: start: 20060927, end: 20060928
  2. AMIKACIN SULFATE [Suspect]
     Indication: SEPTIC SHOCK
     Route: 042
     Dates: start: 20060927, end: 20061002
  3. AMIODARONE HYDROCHLORIDE [Suspect]
     Route: 048
     Dates: start: 20060927, end: 20061005
  4. FUROSEMIDE [Suspect]
     Indication: RENAL FAILURE
     Route: 042
     Dates: start: 20060927, end: 20060928
  5. FLUCONAZOLE [Suspect]
     Indication: CANDIDIASIS
     Route: 042
     Dates: start: 20060927, end: 20060928
  6. VANCOMYCIN [Suspect]
     Route: 042
     Dates: start: 20060927, end: 20061014

REACTIONS (2)
  - DERMATITIS BULLOUS [None]
  - THROMBOCYTOPENIA [None]
